FAERS Safety Report 8480732-9 (Version None)
Quarter: 2012Q3

REPORT INFORMATION
  Report Type: 
  Country: None (occurrence: None)
  Receive Date: 20120702
  Receipt Date: 20120625
  Transmission Date: 20120928
  Serious: Yes (Hospitalization, Other)
  Sender: FDA-Public Use
  Company Number: US-AMGEN-USASP2012039266

PATIENT
  Age: 60 Year
  Sex: Female

DRUGS (1)
  1. ENBREL [Suspect]
     Indication: RHEUMATOID ARTHRITIS
     Dosage: 25 MG, QWK
     Dates: start: 20000401, end: 20080101

REACTIONS (10)
  - SYNCOPE [None]
  - RHEUMATOID ARTHRITIS [None]
  - HYPOGLYCAEMIA [None]
  - BLINDNESS UNILATERAL [None]
  - FOOT DEFORMITY [None]
  - CEREBROVASCULAR ACCIDENT [None]
  - TOE AMPUTATION [None]
  - MYOCARDIAL INFARCTION [None]
  - SPINAL FRACTURE [None]
  - EYE DISORDER [None]
